FAERS Safety Report 10017342 (Version 4)
Quarter: 2014Q2

REPORT INFORMATION
  Report Type: Spontaneous
  Country: JP (occurrence: JP)
  Receive Date: 20140318
  Receipt Date: 20140616
  Transmission Date: 20141212
  Serious: Yes (Hospitalization)
  Sender: FDA-Public Use
  Company Number: JP-JNJFOC-20140306238

PATIENT
  Age: 55 Year
  Sex: Male
  Weight: 72 kg

DRUGS (20)
  1. XEPLION [Suspect]
     Indication: SCHIZOPHRENIA
     Route: 030
     Dates: start: 20131220, end: 20131220
  2. XEPLION [Suspect]
     Indication: SCHIZOPHRENIA
     Route: 030
     Dates: start: 20131226, end: 20131226
  3. XEPLION [Suspect]
     Indication: SCHIZOPHRENIA
     Route: 030
     Dates: start: 20140220, end: 20140220
  4. XEPLION [Suspect]
     Indication: SCHIZOPHRENIA
     Route: 030
     Dates: start: 20140123, end: 20140123
  5. NON-PYRINE COLD PREPARATION [Concomitant]
     Indication: NASOPHARYNGITIS
     Route: 065
     Dates: start: 20140220, end: 20140223
  6. AKINETON [Concomitant]
     Indication: PRODUCT USED FOR UNKNOWN INDICATION
     Route: 065
  7. CARBAMAZEPINE [Concomitant]
     Indication: SCHIZOPHRENIA
     Route: 048
     Dates: start: 20041227
  8. LENDORMIN [Concomitant]
     Indication: PRODUCT USED FOR UNKNOWN INDICATION
     Route: 065
  9. ROHYPNOL [Concomitant]
     Indication: SCHIZOPHRENIA
     Route: 065
     Dates: start: 20140220
  10. LEVOTOMIN [Concomitant]
     Indication: SCHIZOPHRENIA
     Route: 065
     Dates: start: 20131115
  11. GASTER [Concomitant]
     Indication: GASTRODUODENAL ULCER
     Route: 048
     Dates: start: 20011106
  12. ZYPREXA [Concomitant]
     Indication: SCHIZOPHRENIA
     Route: 048
     Dates: start: 20020402, end: 20140220
  13. QUETIAPINE [Concomitant]
     Indication: SCHIZOPHRENIA
     Route: 048
     Dates: start: 20121129, end: 20140109
  14. BIPERIDEN HYDROCHLORIDE [Concomitant]
     Indication: SCHIZOPHRENIA
     Route: 048
     Dates: start: 19991012
  15. BROTIZOLAM [Concomitant]
     Indication: SCHIZOPHRENIA
     Route: 048
     Dates: start: 20100909
  16. DALMATE [Concomitant]
     Indication: SCHIZOPHRENIA
     Route: 048
     Dates: start: 19991019, end: 20140220
  17. VEGETAMIN-B [Concomitant]
     Indication: SCHIZOPHRENIA
     Route: 048
     Dates: start: 20000218, end: 20140109
  18. MOHRUS TAPE L [Concomitant]
     Indication: INTERVERTEBRAL DISC PROTRUSION
     Route: 062
  19. PL COMBINATION [Concomitant]
     Indication: NASOPHARYNGITIS
     Route: 048
     Dates: start: 20140220, end: 20140223
  20. TSUMARA SHAKUYAKUKANZOTO [Concomitant]
     Indication: SCHIZOPHRENIA
     Route: 048
     Dates: start: 20130605

REACTIONS (2)
  - Water intoxication [Recovering/Resolving]
  - Status epilepticus [Recovered/Resolved]
